FAERS Safety Report 18785409 (Version 4)
Quarter: 2021Q1

REPORT INFORMATION
  Report Type: Spontaneous
  Country: MY (occurrence: MY)
  Receive Date: 20210125
  Receipt Date: 20210222
  Transmission Date: 20210419
  Serious: Yes (Other)
  Sender: FDA-Public Use
  Company Number: MY-OTSUKA-2021_001403

PATIENT
  Age: 39 Year
  Sex: Female

DRUGS (3)
  1. DECITABINE. [Suspect]
     Active Substance: DECITABINE
     Indication: ACUTE MYELOID LEUKAEMIA
     Dosage: FIRST CYCLE FROM 15?JUL?2016 (10 MG/M2,5 DAYS EVERY 28 DAYS)
     Route: 042
     Dates: start: 20160715
  2. DECITABINE. [Suspect]
     Active Substance: DECITABINE
     Dosage: 6TH CYCLE WAS GIVEN ON 7?FEB?2017 (10 MG/M2,5 DAYS EVERY 28 DAYS
     Route: 042
     Dates: start: 20170207
  3. CERVAGEM [Concomitant]
     Indication: LABOUR INDUCTION
     Dosage: 2 DOSES (1 MG)
     Route: 065
     Dates: start: 20170627, end: 20170627

REACTIONS (2)
  - Teratogenicity [Unknown]
  - Maternal exposure during pregnancy [Unknown]

NARRATIVE: CASE EVENT DATE: 2017
